FAERS Safety Report 4734037-X (Version None)
Quarter: 2005Q3

REPORT INFORMATION
  Report Type: 
  Country: None (occurrence: None)
  Receive Date: 20050721
  Receipt Date: 20050509
  Transmission Date: 20060218
  Serious: No
  Sender: FDA-Public Use
  Company Number: 2005SP000638

PATIENT
  Age: 59 Year
  Sex: Female
  Weight: 47.6277 kg

DRUGS (1)
  1. LUNESTA [Suspect]
     Dosage: 1.5 MG;UNKNOWN;ORAL
     Route: 048

REACTIONS (3)
  - DRUG INEFFECTIVE [None]
  - DYSGEUSIA [None]
  - INSOMNIA [None]
